FAERS Safety Report 24752896 (Version 1)
Quarter: 2024Q4

REPORT INFORMATION
  Report Type: Spontaneous
  Country: US (occurrence: None)
  Receive Date: 20241218
  Receipt Date: 20241218
  Transmission Date: 20250114
  Serious: Yes (Hospitalization)
  Sender: Public
  Company Number: None

PATIENT
  Age: 57 Year
  Sex: Female
  Weight: 65.8 kg

DRUGS (8)
  1. TALTZ [Suspect]
     Active Substance: IXEKIZUMAB
     Indication: Psoriatic arthropathy
     Dosage: OTHER FREQUENCY : ONE INJECTION EVERY 4 WEEKS;?
     Route: 058
     Dates: start: 20241030, end: 20241207
  2. OTEZLA [Concomitant]
     Active Substance: APREMILAST
  3. ONDANSETRON [Concomitant]
     Active Substance: ONDANSETRON
  4. VALACYCLOVIR [Concomitant]
     Active Substance: VALACYCLOVIR HYDROCHLORIDE
  5. ELETRIPTAN [Concomitant]
     Active Substance: ELETRIPTAN
  6. FARXIGA [Concomitant]
     Active Substance: DAPAGLIFLOZIN PROPANEDIOL
  7. Metoprolol Er Succi nate [Concomitant]
  8. ESTRADIOL [Concomitant]
     Active Substance: ESTRADIOL

REACTIONS (3)
  - Injection site swelling [None]
  - Pyrexia [None]
  - Vomiting [None]

NARRATIVE: CASE EVENT DATE: 20241207
